FAERS Safety Report 17770331 (Version 1)
Quarter: 2020Q2

REPORT INFORMATION
  Report Type: Spontaneous
  Country: JP (occurrence: JP)
  Receive Date: 20200512
  Receipt Date: 20200512
  Transmission Date: 20200714
  Serious: Yes (Life-Threatening, Hospitalization, Other)
  Sender: FDA-Public Use
  Company Number: JP-ACCORD-181070

PATIENT
  Age: 41 Year
  Sex: Female

DRUGS (6)
  1. PREDNISOLONE. [Suspect]
     Active Substance: PREDNISOLONE
     Indication: SYSTEMIC LUPUS ERYTHEMATOSUS
  2. DYDROGESTERONE [Suspect]
     Active Substance: DYDROGESTERONE
     Indication: HORMONE THERAPY
     Route: 048
  3. TACROLIMUS. [Suspect]
     Active Substance: TACROLIMUS
     Indication: SYSTEMIC LUPUS ERYTHEMATOSUS
  4. PROGESTERONE. [Suspect]
     Active Substance: PROGESTERONE
     Indication: HORMONE THERAPY
     Route: 067
  5. HYDROXYCHLOROQUINE [Suspect]
     Active Substance: HYDROXYCHLOROQUINE
     Indication: SYSTEMIC LUPUS ERYTHEMATOSUS
  6. ESTRADIOL. [Suspect]
     Active Substance: ESTRADIOL
     Indication: HORMONE THERAPY
     Route: 062

REACTIONS (10)
  - Proteinuria [Recovered/Resolved]
  - Placenta accreta [Recovered/Resolved]
  - Hormone level abnormal [Recovered/Resolved]
  - Pelvic infection [Recovered/Resolved]
  - Infarction [Recovered/Resolved]
  - Adrenal disorder [Recovered/Resolved]
  - Exposure during pregnancy [Recovered/Resolved]
  - Pre-eclampsia [Recovered/Resolved]
  - Hypogonadism [Recovered/Resolved]
  - Vaginal haemorrhage [Recovered/Resolved]
